FAERS Safety Report 7557203-7 (Version None)
Quarter: 2011Q2

REPORT INFORMATION
  Report Type: 
  Country: None (occurrence: None)
  Receive Date: 20110620
  Receipt Date: 20100621
  Transmission Date: 20111010
  Serious: No
  Sender: FDA-Public Use
  Company Number: US-MYLANLABS-2010S1009797

PATIENT
  Age: 86 Year
  Sex: Male
  Weight: 68.04 kg

DRUGS (6)
  1. PERFOROMIST [Suspect]
     Indication: ASTHMA
     Route: 055
     Dates: start: 20100503
  2. ZOCOR [Concomitant]
  3. PERFOROMIST [Suspect]
     Indication: CHRONIC OBSTRUCTIVE PULMONARY DISEASE
     Route: 055
     Dates: start: 20100503
  4. LASIX [Suspect]
  5. DIOVAN [Concomitant]
  6. HYDROCHLOROTHIAZIDE [Concomitant]

REACTIONS (2)
  - OEDEMA PERIPHERAL [None]
  - RASH [None]
